FAERS Safety Report 9220377 (Version 1)
Quarter: 2013Q2

REPORT INFORMATION
  Report Type: Spontaneous
  Country: GB (occurrence: GB)
  Receive Date: 20130409
  Receipt Date: 20130409
  Transmission Date: 20140414
  Serious: Yes (Other)
  Sender: FDA-Public Use
  Company Number: GB-PFIZER INC-2013111058

PATIENT
  Age: 43 Year
  Sex: Male
  Weight: 63.5 kg

DRUGS (1)
  1. CHAMPIX [Suspect]
     Dosage: UNKNOWN
     Dates: start: 201104, end: 201303

REACTIONS (5)
  - Acute stress disorder [Unknown]
  - Anxiety [Not Recovered/Not Resolved]
  - Paranoia [Not Recovered/Not Resolved]
  - Headache [Not Recovered/Not Resolved]
  - Abdominal discomfort [Not Recovered/Not Resolved]
